FAERS Safety Report 7731813-6 (Version None)
Quarter: 2011Q3

REPORT INFORMATION
  Report Type: 
  Country: None (occurrence: None)
  Receive Date: 20110906
  Receipt Date: 20110831
  Transmission Date: 20111222
  Serious: Yes (Other)
  Sender: FDA-Public Use
  Company Number: PHHY2011CH77177

PATIENT
  Sex: Male

DRUGS (4)
  1. CLOZAPINE [Concomitant]
     Dosage: 6.25 MG, UNK
  2. TOLTERODINE TARTRATE [Concomitant]
     Dosage: UNK UKN, UNK
  3. STALEVO 100 [Suspect]
     Dosage: UNK UKN, UNK
  4. EXELON [Concomitant]
     Dosage: 10 MG, UNK

REACTIONS (2)
  - DEVICE OCCLUSION [None]
  - URINARY SEDIMENT PRESENT [None]
